FAERS Safety Report 12799228 (Version 2)
Quarter: 2016Q4

REPORT INFORMATION
  Report Type: Spontaneous
  Country: US (occurrence: US)
  Receive Date: 20160930
  Receipt Date: 20161213
  Transmission Date: 20170207
  Serious: No
  Sender: FDA-Public Use
  Company Number: US-PFIZER INC-2016427154

PATIENT
  Age: 59 Year
  Sex: Female

DRUGS (1)
  1. XALKORI [Suspect]
     Active Substance: CRIZOTINIB
     Dosage: UNK

REACTIONS (6)
  - Malaise [Unknown]
  - Limb discomfort [Unknown]
  - Vein disorder [Unknown]
  - Fatigue [Unknown]
  - Peripheral swelling [Unknown]
  - Oropharyngeal pain [Unknown]
